FAERS Safety Report 4411371-4 (Version None)
Quarter: 2004Q3

REPORT INFORMATION
  Report Type: 
  Country: None (occurrence: None)
  Receive Date: 20040727
  Receipt Date: 20040715
  Transmission Date: 20050211
  Serious: Yes (Hospitalization)
  Sender: FDA-Public Use
  Company Number: 2004CG00752

PATIENT
  Age: 64 Year
  Sex: Male
  Weight: 99 kg

DRUGS (5)
  1. TENORDATE [Suspect]
     Dosage: 50 + 20 MG
  2. OMEPRAZOLE [Suspect]
     Dosage: 10 MG DAILY PO
     Route: 048
     Dates: start: 19900615
  3. MOXIFLOXACIN HCL [Suspect]
     Dates: start: 20040214, end: 20040221
  4. ALDACTAZINE [Suspect]
     Dosage: 1 DF QD PO
     Route: 048
  5. FRACTAL [Suspect]
     Dosage: 40 MG QD PO
     Route: 048

REACTIONS (5)
  - C-REACTIVE PROTEIN INCREASED [None]
  - CLOSTRIDIUM COLITIS [None]
  - SKIN LESION [None]
  - URTICARIA [None]
  - WHITE BLOOD CELL COUNT INCREASED [None]
